FAERS Safety Report 9670632 (Version 2)
Quarter: 2013Q4

REPORT INFORMATION
  Report Type: Report from Study
  Country: BR (occurrence: BR)
  Receive Date: 20131106
  Receipt Date: 20131106
  Transmission Date: 20140711
  Serious: Yes (Other)
  Sender: FDA-Public Use
  Company Number: BR-ROCHE-1253435

PATIENT
  Age: 39 Year
  Sex: Female

DRUGS (4)
  1. AVASTIN [Suspect]
     Indication: OVARIAN CANCER
     Dosage: 8 SESSIONS EACH 21 DAYS
     Route: 065
  2. PACLITAXEL [Suspect]
     Indication: OVARIAN CANCER
     Dosage: 8 SESSIONS EACH 21 DAYS
     Route: 065
  3. DOXORUBICIN [Suspect]
     Indication: OVARIAN CANCER
     Route: 065
  4. CARBOPLATIN [Suspect]
     Indication: OVARIAN CANCER
     Dosage: 8 SESSIONS EACH 21 DAYS
     Route: 065

REACTIONS (2)
  - Lung neoplasm [Unknown]
  - Nausea [Unknown]
